FAERS Safety Report 6850839-8 (Version None)
Quarter: 2010Q3

REPORT INFORMATION
  Report Type: 
  Country: None (occurrence: None)
  Receive Date: 20100716
  Receipt Date: 20071022
  Transmission Date: 20110219
  Serious: No
  Sender: FDA-Public Use
  Company Number: US-PFIZER INC-2007089538

PATIENT
  Sex: Female
  Weight: 83.9 kg

DRUGS (13)
  1. CHANTIX [Suspect]
     Indication: SMOKING CESSATION THERAPY
     Dates: start: 20071019
  2. GLUCOPHAGE [Concomitant]
  3. SERTRALINE HCL [Concomitant]
  4. PRILOSEC [Concomitant]
  5. RANITIDINE [Concomitant]
  6. CRESTOR [Concomitant]
  7. CARDIZEM [Concomitant]
  8. OMEGA-3 TRIGLYCERIDES [Concomitant]
  9. FISH OIL [Concomitant]
  10. ADVAIR DISKUS 100/50 [Concomitant]
     Route: 055
  11. ALBUTEROL [Concomitant]
     Route: 055
  12. OXYGEN [Concomitant]
  13. ALL OTHER THERAPEUTIC PRODUCTS [Concomitant]

REACTIONS (1)
  - HEADACHE [None]
